FAERS Safety Report 8561300-7 (Version None)
Quarter: 2012Q3

REPORT INFORMATION
  Report Type: 
  Country: None (occurrence: None)
  Receive Date: 20120727
  Receipt Date: 20120727
  Transmission Date: 20120928
  Serious: Yes (Hospitalization)
  Sender: FDA-Public Use
  Company Number: None

PATIENT
  Age: 90 Year
  Sex: Female
  Weight: 75 kg

DRUGS (12)
  1. GLIPIZIDE [Concomitant]
  2. CHOLECALCIFEROL [Concomitant]
  3. APAP W/ CODEINE [Concomitant]
  4. OLMESARTAN MEDOXOMIL [Concomitant]
  5. PLETAL [Suspect]
     Indication: CEREBROVASCULAR ACCIDENT
     Dosage: 100MG BID PO CHRONIC
  6. ROSUVASTATIN [Concomitant]
  7. PLAVIX [Suspect]
     Indication: CEREBROVASCULAR ACCIDENT
     Dosage: 75MG DAILY PO CHRONIC
     Route: 048
  8. SANTYL [Concomitant]
  9. MECLIZINE [Concomitant]
  10. COLCHICINE [Concomitant]
  11. LATANOPROST [Concomitant]
  12. AMLODIPINE [Concomitant]

REACTIONS (9)
  - MALLORY-WEISS SYNDROME [None]
  - HAEMORRHAGIC ANAEMIA [None]
  - OESOPHAGITIS [None]
  - UNRESPONSIVE TO STIMULI [None]
  - ASTHENIA [None]
  - HAEMATEMESIS [None]
  - DIZZINESS [None]
  - UPPER GASTROINTESTINAL HAEMORRHAGE [None]
  - GASTRITIS [None]
